FAERS Safety Report 10663926 (Version 2)
Quarter: 2014Q4

REPORT INFORMATION
  Report Type: Spontaneous
  Country: CA (occurrence: CA)
  Receive Date: 20141219
  Receipt Date: 20141230
  Transmission Date: 20150529
  Serious: Yes (Other)
  Sender: FDA-Public Use
  Company Number: CHPA2014CA016529

PATIENT
  Age: 81 Year
  Sex: Male

DRUGS (16)
  1. GAS-X [Suspect]
     Active Substance: DIMETHICONE
     Indication: CONSTIPATION
     Dosage: 1 STRIP, 2 TO 3 TIMES A WEEK
     Route: 048
  2. AVODART [Concomitant]
     Active Substance: DUTASTERIDE
     Indication: PROSTATOMEGALY
     Dosage: 0.5 MG, UNK
     Route: 065
     Dates: start: 2012
  3. GAS-X [Suspect]
     Active Substance: DIMETHICONE
     Indication: GASTROOESOPHAGEAL REFLUX DISEASE
  4. FLUOXETINE [Concomitant]
     Active Substance: FLUOXETINE\FLUOXETINE HYDROCHLORIDE
     Indication: PRODUCT USED FOR UNKNOWN INDICATION
     Dosage: 10 MG, QD
     Route: 065
     Dates: start: 2012
  5. CRESTOR [Concomitant]
     Active Substance: ROSUVASTATIN CALCIUM
     Indication: BLOOD CHOLESTEROL INCREASED
     Dosage: 10 MG, QD
     Route: 065
     Dates: start: 2004
  6. WARFARIN [Concomitant]
     Active Substance: WARFARIN
     Indication: PRODUCT USED FOR UNKNOWN INDICATION
     Dosage: 6 MG, QD
     Route: 065
     Dates: start: 1999, end: 2014
  7. GAVISCON                           /01517701/ [Concomitant]
     Indication: ULCER
  8. GAS-X [Suspect]
     Active Substance: DIMETHICONE
     Indication: CONSTIPATION
     Dosage: 1 DF, UNK
     Route: 048
     Dates: start: 201409
  9. FLOMAX [Concomitant]
     Active Substance: TAMSULOSIN HYDROCHLORIDE
     Indication: PROSTATOMEGALY
     Dosage: 0.4 MG, UNK
     Route: 065
     Dates: start: 2004, end: 2012
  10. GAS-X [Suspect]
     Active Substance: DIMETHICONE
     Indication: ULCER
     Dosage: 1 STRIP, 2 TO 3 TIMES A WEEK
     Route: 048
     Dates: start: 2011
  11. GAS-X [Suspect]
     Active Substance: DIMETHICONE
     Indication: GASTROOESOPHAGEAL REFLUX DISEASE
  12. DILTIAZEM [Concomitant]
     Active Substance: DILTIAZEM
     Indication: TACHYCARDIA
     Dosage: 180 MG, QD
     Route: 065
     Dates: start: 2004
  13. HEPARIN [Concomitant]
     Active Substance: HEPARIN SODIUM
     Indication: COLONOSCOPY
     Dosage: UNK
     Route: 065
     Dates: start: 2014, end: 2014
  14. GAVISCON                           /01517701/ [Concomitant]
     Indication: CONSTIPATION
     Dosage: UNK
     Route: 065
  15. GAVISCON                           /01517701/ [Concomitant]
     Indication: GASTROOESOPHAGEAL REFLUX DISEASE
  16. GAS-X [Suspect]
     Active Substance: DIMETHICONE
     Indication: ULCER

REACTIONS (4)
  - Abdominal pain upper [Recovered/Resolved]
  - Therapeutic response unexpected [Unknown]
  - Product use issue [Unknown]
  - Large intestine polyp [Recovered/Resolved]

NARRATIVE: CASE EVENT DATE: 201409
